FAERS Safety Report 4984081-2 (Version None)
Quarter: 2006Q1

REPORT INFORMATION
  Report Type: 
  Country: None (occurrence: None)
  Receive Date: 20060306
  Receipt Date: 20060104
  Transmission Date: 20060701
  Serious: No
  Sender: FDA-Public Use
  Company Number: 33563

PATIENT

DRUGS (2)
  1. NEVANAC [Suspect]
     Indication: PROPHYLAXIS
  2. ECONOPRED PLUS [Suspect]
     Indication: PROPHYLAXIS

REACTIONS (1)
  - MACULAR OEDEMA [None]
